FAERS Safety Report 26147167 (Version 1)
Quarter: 2025Q4

REPORT INFORMATION
  Report Type: Spontaneous
  Country: US (occurrence: US)
  Receive Date: 20251211
  Receipt Date: 20251211
  Transmission Date: 20260118
  Serious: No
  Sender: ABBVIE
  Company Number: US-ABBVIE-6583549

PATIENT
  Age: 19 Year
  Sex: Female
  Weight: 52 kg

DRUGS (11)
  1. LILETTA [Suspect]
     Active Substance: LEVONORGESTREL
     Indication: Contraception
     Dosage: TIME INTERVAL: AS NECESSARY
     Route: 015
     Dates: start: 20250714
  2. ACETAMINOPHEN AND CODEINE [Concomitant]
     Active Substance: ACETAMINOPHEN\CODEINE PHOSPHATE
     Indication: Procedural pain
     Dosage: TIME INTERVAL: AS NECESSARY: ACETAMINOPHEN 300 MG-CODEINE 30 MG
     Route: 048
     Dates: start: 20250623
  3. ACETAMINOPHEN AND CODEINE [Concomitant]
     Active Substance: ACETAMINOPHEN\CODEINE PHOSPHATE
     Indication: Procedural pain
     Dosage: TIME INTERVAL: AS NECESSARY: ACETAMINOPHEN 300 MG-CODEINE 30 MG
     Route: 048
     Dates: start: 20240424
  4. DIAZEPAM [Concomitant]
     Active Substance: DIAZEPAM
     Indication: Procedural anxiety
     Dosage: TIME INTERVAL: AS NECESSARY
     Route: 048
     Dates: start: 20250623
  5. LURASIDONE [Concomitant]
     Active Substance: LURASIDONE
     Indication: Product used for unknown indication
     Dosage: IN EVENING
     Route: 048
     Dates: start: 20240109
  6. LAMOTRIGINE [Concomitant]
     Active Substance: LAMOTRIGINE
     Indication: Product used for unknown indication
     Dates: start: 20240109
  7. SERTRALINE [Concomitant]
     Active Substance: SERTRALINE HYDROCHLORIDE
     Indication: Product used for unknown indication
     Dates: start: 20210802
  8. PREGABALIN [Concomitant]
     Active Substance: PREGABALIN
     Indication: Product used for unknown indication
     Dates: start: 20210802
  9. FLUCONAZOLE [Concomitant]
     Active Substance: FLUCONAZOLE
     Indication: Vulvovaginal pruritus
     Route: 048
     Dates: start: 20240514
  10. AMOXICILLIN\CLAVULANATE POTASSIUM [Concomitant]
     Active Substance: AMOXICILLIN\CLAVULANATE POTASSIUM
     Indication: Urinary tract infection
     Dosage: AMOXICILLIN 875 MG - POTASSIUM CLAVULANATE 125 MG
     Dates: start: 20240514
  11. BACTRIM DS [Concomitant]
     Active Substance: SULFAMETHOXAZOLE\TRIMETHOPRIM
     Indication: Urinary tract infection
     Dosage: 800 MG - 160 MG
     Route: 048
     Dates: start: 20240508

REACTIONS (19)
  - Cough [Unknown]
  - Acne [Unknown]
  - Fatigue [Unknown]
  - Headache [Unknown]
  - Pain [Unknown]
  - Procedural pain [Unknown]
  - Device issue [Unknown]
  - Rhinorrhoea [Unknown]
  - Sneezing [Unknown]
  - Nasal congestion [Unknown]
  - Eczema [Unknown]
  - Depression [Unknown]
  - Nervousness [Unknown]
  - Mental disorder [Unknown]
  - Arthralgia [Unknown]
  - Back disorder [Unknown]
  - Joint stiffness [Unknown]
  - Muscle spasms [Unknown]
  - Musculoskeletal stiffness [Unknown]

NARRATIVE: CASE EVENT DATE: 20250101
